APPROVED DRUG PRODUCT: VANCOMYCIN HYDROCHLORIDE
Active Ingredient: VANCOMYCIN HYDROCHLORIDE
Strength: EQ 10GM BASE/VIAL
Dosage Form/Route: INJECTABLE;INJECTION
Application: A091469 | Product #001
Applicant: MYLAN LABORATORIES LTD
Approved: Jul 1, 2011 | RLD: No | RS: No | Type: DISCN